FAERS Safety Report 13896278 (Version 2)
Quarter: 2017Q3

REPORT INFORMATION
  Report Type: Other
  Country: FR (occurrence: FR)
  Receive Date: 20170823
  Receipt Date: 20170915
  Transmission Date: 20171127
  Serious: Yes (Other)
  Sender: FDA-Public Use
  Company Number: FR-VELOXIS PHARMACEUTICALS-2024967

PATIENT
  Age: 6 Year
  Sex: Female

DRUGS (4)
  1. MYCOPHENOLATE MOFETIL. [Suspect]
     Active Substance: MYCOPHENOLATE MOFETIL
     Route: 065
  2. ENVARSUS XR [Suspect]
     Active Substance: TACROLIMUS
     Indication: LIVER TRANSPLANT
     Route: 065
  3. BASILIXIMAB [Suspect]
     Active Substance: BASILIXIMAB
     Route: 065
  4. CORTICOSTEROIDS [Suspect]
     Active Substance: CORTICOSTEROID NOS
     Route: 065

REACTIONS (5)
  - Coccidioidomycosis [None]
  - Lung infiltration [None]
  - Pulmonary mass [None]
  - Drug administered to patient of inappropriate age [None]
  - Liver transplant rejection [None]
